FAERS Safety Report 13390053 (Version 3)
Quarter: 2017Q2

REPORT INFORMATION
  Report Type: Spontaneous
  Country: ES (occurrence: ES)
  Receive Date: 20170331
  Receipt Date: 20170517
  Transmission Date: 20170830
  Serious: Yes (Other)
  Sender: FDA-Public Use
  Company Number: ES-AMGEN-ESPSP2017018958

PATIENT
  Sex: Female

DRUGS (5)
  1. PROLIA [Suspect]
     Active Substance: DENOSUMAB
     Indication: OSTEOPOROSIS
     Dosage: UNK
     Route: 065
     Dates: start: 2012, end: 201701
  2. VITAMIN D [Concomitant]
     Active Substance: CHOLECALCIFEROL
     Dosage: UNK, QWK
  3. IRON [Concomitant]
     Active Substance: IRON
  4. HIDROFEROL [Concomitant]
     Active Substance: CALCIFEDIOL
     Dosage: UNK UNK, QWK
  5. CALCIUM [Concomitant]
     Active Substance: CALCIUM
     Dosage: UNK

REACTIONS (20)
  - Pyrexia [Recovered/Resolved]
  - Pain [Unknown]
  - Pain in extremity [Not Recovered/Not Resolved]
  - Hepatic cyst [Unknown]
  - Malaise [Unknown]
  - Intervertebral disc protrusion [Unknown]
  - Pain in jaw [Unknown]
  - Haemoglobin decreased [Unknown]
  - Back pain [Unknown]
  - Urinary tract infection [Recovered/Resolved]
  - Arthralgia [Unknown]
  - Abasia [Unknown]
  - Neck pain [Unknown]
  - Mobility decreased [Unknown]
  - Musculoskeletal pain [Unknown]
  - Insomnia [Unknown]
  - Renal cyst [Unknown]
  - Sepsis [Unknown]
  - Muscle spasms [Unknown]
  - Anaemia [Unknown]

NARRATIVE: CASE EVENT DATE: 201701
